FAERS Safety Report 7564052-2 (Version None)
Quarter: 2011Q2

REPORT INFORMATION
  Report Type: 
  Country: None (occurrence: None)
  Receive Date: 20110622
  Receipt Date: 20110613
  Transmission Date: 20111010
  Serious: Yes (Hospitalization, Disabling, Other)
  Sender: FDA-Public Use
  Company Number: US-ASTRAZENECA-2011SE35857

PATIENT
  Age: 73 Year
  Sex: Female
  Weight: 77.1 kg

DRUGS (8)
  1. CENTRUM SILVER [Concomitant]
     Indication: VITAMIN SUPPLEMENTATION
     Dosage: DAILY
     Route: 048
  2. ASPIRIN [Concomitant]
     Indication: VASCULAR GRAFT
     Route: 048
  3. CRESTOR [Suspect]
     Indication: HYPERCHOLESTEROLAEMIA
     Route: 048
  4. VITAMIN D [Concomitant]
  5. VITAMIN D [Concomitant]
  6. COZAAR [Concomitant]
     Indication: HYPERTENSION
     Route: 048
  7. COREG [Concomitant]
     Indication: CARDIAC DISORDER
     Route: 048
  8. ROCALTROL [Concomitant]
     Route: 048

REACTIONS (11)
  - CHOLECYSTECTOMY [None]
  - CORONARY ARTERIAL STENT INSERTION [None]
  - VASCULAR GRAFT [None]
  - DRUG INEFFECTIVE [None]
  - HYPERTENSION [None]
  - BLOOD CHOLESTEROL INCREASED [None]
  - ACTIVITIES OF DAILY LIVING IMPAIRED [None]
  - ARTHRALGIA [None]
  - GAIT DISTURBANCE [None]
  - PAIN IN EXTREMITY [None]
  - CARDIAC DISORDER [None]
